FAERS Safety Report 15906830 (Version 1)
Quarter: 2019Q1

REPORT INFORMATION
  Report Type: Spontaneous
  Country: US (occurrence: US)
  Receive Date: 20190204
  Receipt Date: 20190204
  Transmission Date: 20190417
  Serious: Yes (Hospitalization)
  Sender: FDA-Public Use
  Company Number: None

PATIENT
  Age: 26 Year
  Sex: Female

DRUGS (4)
  1. CALCIUM D [Concomitant]
     Active Substance: CALCIUM\VITAMIN D
  2. LETROZOLE. [Concomitant]
     Active Substance: LETROZOLE
  3. KISQALI [Suspect]
     Active Substance: RIBOCICLIB
     Indication: OESTROGEN RECEPTOR POSITIVE BREAST CANCER
     Dosage: ?          OTHER FREQUENCY:QD21/28 DAYS;?
     Route: 048
     Dates: start: 20171226
  4. TRAMADOL. [Concomitant]
     Active Substance: TRAMADOL

REACTIONS (1)
  - Product dose omission [None]

NARRATIVE: CASE EVENT DATE: 20190110
